FAERS Safety Report 6385659-4 (Version None)
Quarter: 2009Q3

REPORT INFORMATION
  Report Type: 
  Country: None (occurrence: None)
  Receive Date: 20090929
  Receipt Date: 20090326
  Transmission Date: 20100115
  Serious: Yes (Life-Threatening, Hospitalization)
  Sender: FDA-Public Use
  Company Number: LMI-2009-00054

PATIENT
  Age: 47 Year
  Sex: Male
  Weight: 99.4 kg

DRUGS (10)
  1. DEFINITY [Suspect]
     Indication: CARDIOMYOPATHY
     Dosage: 1.3 ML DEFINITY DILUTED IN 8.7 ML NAC1 (2 ML), INTRAVENOUS
     Route: 042
     Dates: start: 20090326, end: 20090326
  2. DEFINITY [Suspect]
     Indication: ECHOCARDIOGRAM
     Dosage: 1.3 ML DEFINITY DILUTED IN 8.7 ML NAC1 (2 ML), INTRAVENOUS
     Route: 042
     Dates: start: 20090326, end: 20090326
  3. BUMETANIDE [Concomitant]
  4. DIGOXIN [Concomitant]
  5. LISINOPRIL [Concomitant]
  6. METOPROLOL (METOPROLOL) [Concomitant]
  7. WARFARIN SODIUM [Concomitant]
  8. OMEPRAZOLE [Concomitant]
  9. TRAMADOL HCL [Concomitant]
  10. NORTIPTYLINE (NORTRIPTYLINE HYDROCHLORIDE) [Concomitant]

REACTIONS (2)
  - ANAPHYLACTIC SHOCK [None]
  - CARDIO-RESPIRATORY ARREST [None]
